FAERS Safety Report 6848234-0 (Version None)
Quarter: 2010Q3

REPORT INFORMATION
  Report Type: 
  Country: None (occurrence: None)
  Receive Date: 20100716
  Receipt Date: 20100705
  Transmission Date: 20110219
  Serious: Yes (Hospitalization)
  Sender: FDA-Public Use
  Company Number: JP-PFIZER INC-2010083227

PATIENT
  Age: 85 Year
  Sex: Male
  Weight: 54.875 kg

DRUGS (7)
  1. DETRUSITOL [Suspect]
     Indication: POLLAKIURIA
     Dosage: 2 MG, 1X/DAY
     Route: 048
     Dates: start: 20100401, end: 20100401
  2. AMLODIPINE [Concomitant]
     Route: 048
  3. VALSARTAN [Concomitant]
     Route: 048
  4. COBALTAMIN [Concomitant]
     Route: 048
  5. TEGRETOL [Concomitant]
     Route: 048
  6. FLIVAS [Concomitant]
     Dosage: UNK
     Route: 048
  7. HARNAL [Concomitant]
     Dosage: UNK
     Route: 048

REACTIONS (1)
  - URINARY RETENTION [None]
